FAERS Safety Report 11812255 (Version 1)
Quarter: 2015Q4

REPORT INFORMATION
  Report Type: Other
  Country: US (occurrence: US)
  Receive Date: 20151208
  Receipt Date: 20151208
  Transmission Date: 20160305
  Serious: Yes (Other)
  Sender: FDA-Public Use
  Company Number: US-ENDO PHARMACEUTICALS INC-2015-004592

PATIENT
  Age: 20 Year
  Sex: Male

DRUGS (3)
  1. BACLOFEN TABLETS [Suspect]
     Active Substance: BACLOFEN
     Indication: PRODUCT USED FOR UNKNOWN INDICATION
     Dosage: 5MG BID AND 7.5MG QHS
     Route: 065
     Dates: start: 20141007, end: 201410
  2. TYLENOL [Concomitant]
     Active Substance: ACETAMINOPHEN
     Indication: HEADACHE
     Route: 065
  3. BACLOFEN TABLETS [Suspect]
     Active Substance: BACLOFEN
     Route: 065
     Dates: start: 20141001, end: 20141007

REACTIONS (1)
  - Thrombocytopenia [Recovered/Resolved]

NARRATIVE: CASE EVENT DATE: 201410
